FAERS Safety Report 16441348 (Version 1)
Quarter: 2019Q2

REPORT INFORMATION
  Report Type: Spontaneous
  Country: PL (occurrence: PL)
  Receive Date: 20190617
  Receipt Date: 20190617
  Transmission Date: 20190711
  Serious: Yes (Other)
  Sender: FDA-Public Use
  Company Number: PL-PROVELL PHARMACEUTICALS-2069272

PATIENT
  Sex: Female

DRUGS (2)
  1. ACARD [Suspect]
     Active Substance: ASPIRIN
  2. EUTHYROX [Suspect]
     Active Substance: LEVOTHYROXINE SODIUM
     Indication: PRODUCT USED FOR UNKNOWN INDICATION

REACTIONS (3)
  - Maternal exposure during pregnancy [None]
  - Prenatal screening test abnormal [None]
  - Ultrasound antenatal screen abnormal [None]
